FAERS Safety Report 11066121 (Version 2)
Quarter: 2015Q2

REPORT INFORMATION
  Report Type: Spontaneous
  Country: US (occurrence: US)
  Receive Date: 20150425
  Receipt Date: 20150525
  Transmission Date: 20150821
  Serious: No
  Sender: FDA-Public Use
  Company Number: US-JNJFOC-20140104122

PATIENT
  Age: 72 Year
  Sex: Female
  Weight: 68.04 kg

DRUGS (1)
  1. SIMPONI [Suspect]
     Active Substance: GOLIMUMAB
     Indication: RHEUMATOID ARTHRITIS
     Route: 058
     Dates: start: 20140107

REACTIONS (5)
  - Incorrect product storage [Unknown]
  - Drug dose omission [Unknown]
  - Device malfunction [Unknown]
  - Wrong technique in drug usage process [Unknown]
  - Application site reaction [Recovered/Resolved]

NARRATIVE: CASE EVENT DATE: 20140107
